FAERS Safety Report 11134695 (Version 1)
Quarter: 2015Q2

REPORT INFORMATION
  Report Type: Report from Study
  Country: US (occurrence: US)
  Receive Date: 20150525
  Receipt Date: 20150525
  Transmission Date: 20150821
  Serious: No
  Sender: FDA-Public Use
  Company Number: US-AMGEN-USASL2015049468

PATIENT
  Age: 17 Year
  Sex: Female

DRUGS (1)
  1. ENBREL [Suspect]
     Active Substance: ETANERCEPT
     Indication: JUVENILE IDIOPATHIC ARTHRITIS
     Dosage: 50 MG, QWK
     Route: 065
     Dates: start: 20150516

REACTIONS (8)
  - Anxiety [Not Recovered/Not Resolved]
  - Wrong technique in drug usage process [Recovered/Resolved]
  - Anaemia [Not Recovered/Not Resolved]
  - Injection site pain [Recovered/Resolved]
  - Fear [Not Recovered/Not Resolved]
  - Fatigue [Not Recovered/Not Resolved]
  - Depressed mood [Recovered/Resolved]
  - Pain [Not Recovered/Not Resolved]

NARRATIVE: CASE EVENT DATE: 2015
